FAERS Safety Report 8348833-3 (Version None)
Quarter: 2012Q2

REPORT INFORMATION
  Report Type: 
  Country: None (occurrence: None)
  Receive Date: 20120508
  Receipt Date: 20120423
  Transmission Date: 20120825
  Serious: Yes (Hospitalization)
  Sender: FDA-Public Use
  Company Number: JPI-P-004314

PATIENT
  Age: 50 Year
  Sex: Female

DRUGS (5)
  1. PRAMIPEXOLE DIHYDROCHLORIDE [Concomitant]
  2. XYREM [Suspect]
     Indication: INSOMNIA
     Dosage: SEE IMAGE
     Route: 048
     Dates: start: 20080710, end: 20080713
  3. XYREM [Suspect]
     Indication: INSOMNIA
     Dosage: SEE IMAGE
     Route: 048
     Dates: start: 20080615, end: 20080709
  4. XYREM [Suspect]
     Indication: INSOMNIA
     Dosage: SEE IMAGE
     Route: 048
     Dates: start: 20080714, end: 20090506
  5. MODAFINIL [Concomitant]

REACTIONS (10)
  - ELECTROCARDIOGRAM CHANGE [None]
  - TREATMENT NONCOMPLIANCE [None]
  - FEELING COLD [None]
  - WEIGHT DECREASED [None]
  - HYPERHIDROSIS [None]
  - CHEST PAIN [None]
  - DYSPNOEA [None]
  - CARDIAC ENZYMES INCREASED [None]
  - NAUSEA [None]
  - CONFUSIONAL STATE [None]
